FAERS Safety Report 24327846 (Version 5)
Quarter: 2024Q4

REPORT INFORMATION
  Report Type: Spontaneous
  Country: IT (occurrence: IT)
  Receive Date: 20240917
  Receipt Date: 20241015
  Transmission Date: 20250114
  Serious: Yes (Death, Other)
  Sender: GILEAD
  Company Number: None

PATIENT
  Age: 18 Year
  Sex: Male
  Weight: 64 kg

DRUGS (7)
  1. YESCARTA [Suspect]
     Active Substance: AXICABTAGENE CILOLEUCEL
     Indication: Primary mediastinal large B-cell lymphoma refractory
     Dosage: 1 DOSAGE FORM (TOTAL)
     Route: 042
     Dates: start: 20240205, end: 20240209
  2. OPDIVO [Suspect]
     Active Substance: NIVOLUMAB
     Indication: Primary mediastinal large B-cell lymphoma refractory
     Dosage: 240 MG Q3WK
     Route: 042
     Dates: start: 20230413, end: 20240109
  3. BACTRIM [Concomitant]
     Active Substance: SULFAMETHOXAZOLE\TRIMETHOPRIM
     Indication: Prophylaxis
     Dosage: 1 DOSAGE FORM, CYCLICAL
     Route: 048
     Dates: start: 202211, end: 20240209
  4. LEVETIRACETAM [Concomitant]
     Active Substance: LEVETIRACETAM
     Indication: Epilepsy
  5. PANTOPRAZOLE SODIUM [Concomitant]
     Active Substance: PANTOPRAZOLE SODIUM
     Indication: Prophylaxis
     Dosage: 1 CP DIE
     Route: 048
     Dates: start: 202211, end: 20240209
  6. CHOLECALCIFEROL [Concomitant]
     Active Substance: CHOLECALCIFEROL
     Indication: Hypovitaminosis
     Dosage: 1 FL OGNI 15 GIORNI
     Route: 048
     Dates: start: 202211, end: 20240209
  7. ACYCLOVIR [Concomitant]
     Active Substance: ACYCLOVIR
     Indication: Prophylaxis
     Dosage: 800 MG, QOD
     Route: 048
     Dates: start: 202211, end: 20240209

REACTIONS (3)
  - Neurotoxicity [Fatal]
  - Cytokine release syndrome [Fatal]
  - Off label use [Fatal]

NARRATIVE: CASE EVENT DATE: 20240209
